FAERS Safety Report 18883390 (Version 1)
Quarter: 2021Q1

REPORT INFORMATION
  Report Type: Other
  Country: FR (occurrence: FR)
  Receive Date: 20210212
  Receipt Date: 20210212
  Transmission Date: 20210420
  Serious: Yes (Other)
  Sender: FDA-Public Use
  Company Number: FR-APOTEX-2021AP002539

PATIENT
  Age: 19 Year
  Sex: Female

DRUGS (2)
  1. PAROXETINE. [Suspect]
     Active Substance: PAROXETINE
     Indication: DEPRESSION
     Dosage: 20 MG, QD
     Route: 048
     Dates: start: 20201111
  2. STRESAM [Concomitant]
     Active Substance: ETIFOXINE
     Indication: ANXIETY
     Dosage: UNK UNK, PRN, IF NECESSARY
     Route: 048

REACTIONS (3)
  - Presyncope [Unknown]
  - Loss of consciousness [Unknown]
  - Malaise [Unknown]

NARRATIVE: CASE EVENT DATE: 20201208
